FAERS Safety Report 6315635-9 (Version None)
Quarter: 2009Q3

REPORT INFORMATION
  Report Type: 
  Country: None (occurrence: None)
  Receive Date: 20090818
  Receipt Date: 20090812
  Transmission Date: 20100115
  Serious: Yes (Death)
  Sender: FDA-Public Use
  Company Number: 2009US002723

PATIENT
  Age: 67 Year
  Sex: Male

DRUGS (6)
  1. AMBISOME [Suspect]
     Indication: CRYPTOCOCCOSIS
     Dosage: 150 MG, UID/QD, IV NOS
     Route: 042
     Dates: start: 20090618, end: 20090623
  2. VFEND [Concomitant]
  3. MEROPEN (MEROPENEM) [Concomitant]
  4. ELASPOL (SIVELESTAT) [Concomitant]
  5. ZOSYN [Concomitant]
  6. MINOCYCLINE HCL [Concomitant]

REACTIONS (1)
  - RENAL FAILURE [None]
